FAERS Safety Report 10456006 (Version 1)
Quarter: 2014Q3

REPORT INFORMATION
  Report Type: Spontaneous
  Country: US (occurrence: None)
  Receive Date: 20140915
  Receipt Date: 20140915
  Transmission Date: 20150326
  Serious: Yes (Life-Threatening, Other)
  Sender: FDA-Public Use
  Company Number: None

PATIENT
  Age: 25 Year
  Sex: Male
  Weight: 68.04 kg

DRUGS (1)
  1. MELOXICAM 15 MG CAD MIDDLE AST PHARMACEUTICAL IND [Suspect]
     Active Substance: MELOXICAM
     Indication: TENDONITIS
     Route: 048
     Dates: start: 20140806, end: 20140906

REACTIONS (7)
  - No therapeutic response [None]
  - Product substitution issue [None]
  - Gastric haemorrhage [None]
  - Ulcer [None]
  - Therapeutic response changed [None]
  - Abdominal distension [None]
  - Gastritis [None]

NARRATIVE: CASE EVENT DATE: 20140912
